FAERS Safety Report 13256464 (Version 1)
Quarter: 2017Q1

REPORT INFORMATION
  Report Type: Spontaneous
  Country: NL (occurrence: NL)
  Receive Date: 20170221
  Receipt Date: 20170221
  Transmission Date: 20170428
  Serious: Yes (Hospitalization)
  Sender: FDA-Public Use
  Company Number: NL-NOVAST LABORATORIES, LTD-NL-2017NOV000008

PATIENT
  Age: 47 Year
  Sex: Female

DRUGS (7)
  1. DESOGESTREL\ETHINYL ESTRADIOL [Suspect]
     Active Substance: DESOGESTREL\ETHINYL ESTRADIOL
     Indication: ACNE
     Dosage: UNK, 0.15 MG/0.03 MG
  2. ETHINYL OESTRADIOL [Suspect]
     Active Substance: ETHINYL ESTRADIOL
     Indication: ACNE
     Dosage: 0.05 MG, UNK
  3. LYNORAL [Suspect]
     Active Substance: ETHINYL ESTRADIOL
     Indication: ACNE
     Dosage: 0.05 MG, UNK
     Dates: start: 1980
  4. CYPROTERONE ACETATE [Suspect]
     Active Substance: CYPROTERONE ACETATE
     Indication: ACNE
     Dosage: 100 MG, UNK
  5. DIANE (CYPROTERONE ACETATE\ETHINYL ESTRADIOL) [Suspect]
     Active Substance: CYPROTERONE ACETATE\ETHINYL ESTRADIOL
     Indication: ACNE
     Dosage: UNK, 2 MG/0.035 MG
     Dates: start: 1982, end: 1995
  6. LEVONORGESTREL\ETHINYL ESTRADIOL [Suspect]
     Active Substance: ETHINYL ESTRADIOL\LEVONORGESTREL
     Indication: ACNE
     Dosage: UNK, 0.150 MG/0.03 MG
     Dates: start: 2001
  7. ANDROCUR [Suspect]
     Active Substance: CYPROTERONE ACETATE
     Indication: ACNE
     Dosage: 50 MG, UNK
     Dates: start: 1980

REACTIONS (3)
  - Peliosis hepatis [Recovering/Resolving]
  - Blood alkaline phosphatase increased [Recovering/Resolving]
  - Gamma-glutamyltransferase increased [Recovering/Resolving]
